FAERS Safety Report 8833272 (Version 1)
Quarter: 2012Q4

REPORT INFORMATION
  Report Type: 
  Country: KR (occurrence: KR)
  Receive Date: 20121010
  Receipt Date: 20121010
  Transmission Date: 20130627
  Serious: Yes (Other)
  Sender: FDA-Public Use
  Company Number: KR-JNJFOC-20121003298

PATIENT
  Age: 90 Year
  Sex: Female

DRUGS (4)
  1. REMINYL [Suspect]
     Indication: DEMENTIA ALZHEIMER^S TYPE
     Route: 048
  2. REMINYL [Suspect]
     Indication: DEMENTIA ALZHEIMER^S TYPE
     Route: 048
  3. REMINYL [Suspect]
     Indication: DEMENTIA ALZHEIMER^S TYPE
     Route: 048
  4. REMINYL [Suspect]
     Indication: DEMENTIA ALZHEIMER^S TYPE
     Route: 048
     Dates: start: 20120924, end: 20120930

REACTIONS (4)
  - Intercepted medication error [Unknown]
  - Prescribed overdose [Unknown]
  - Diarrhoea [Recovered/Resolved]
  - Vomiting [Recovered/Resolved]
